FAERS Safety Report 17651008 (Version 1)
Quarter: 2020Q2

REPORT INFORMATION
  Report Type: Spontaneous
  Country: AU (occurrence: AU)
  Receive Date: 20200409
  Receipt Date: 20200409
  Transmission Date: 20200713
  Serious: Yes (Other)
  Sender: FDA-Public Use
  Company Number: AU-LUPIN PHARMACEUTICALS INC.-2019-04572

PATIENT
  Age: 76 Year
  Sex: Male

DRUGS (2)
  1. CLADRIBINE. [Concomitant]
     Active Substance: CLADRIBINE
     Indication: HAEMATOLOGICAL MALIGNANCY
     Dosage: 0.14 MILLIGRAM/KILOGRAM
     Route: 065
  2. SULFAMETHOXAZOLE AND TRIMETHOPRIM [Suspect]
     Active Substance: SULFAMETHOXAZOLE\TRIMETHOPRIM
     Indication: PRODUCT USED FOR UNKNOWN INDICATION
     Dosage: UNK
     Route: 065

REACTIONS (2)
  - Dermatitis allergic [Unknown]
  - Rash maculo-papular [Unknown]
